FAERS Safety Report 25990519 (Version 2)
Quarter: 2025Q4

REPORT INFORMATION
  Report Type: Spontaneous
  Country: EU (occurrence: EU)
  Receive Date: 20251103
  Receipt Date: 20251117
  Transmission Date: 20260118
  Serious: Yes (Hospitalization)
  Sender: PFIZER
  Company Number: None

PATIENT
  Age: 51 Year
  Sex: Male

DRUGS (4)
  1. SOMATROPIN [Suspect]
     Active Substance: SOMATROPIN
     Dosage: 6 UNITES / JOUR
  2. TESTOSTERONE [Suspect]
     Active Substance: TESTOSTERONE
     Dosage: 900MG /SEM
     Route: 030
  3. METHENOLONE ACETATE [Suspect]
     Active Substance: METHENOLONE ACETATE
     Dosage: 500 MG/SEM
  4. DROMOSTANOLONE [Suspect]
     Active Substance: DROMOSTANOLONE
     Dosage: 500 MG, WEEKLY

REACTIONS (2)
  - Drug use disorder [Unknown]
  - Acute coronary syndrome [Recovered/Resolved]

NARRATIVE: CASE EVENT DATE: 20250101
